FAERS Safety Report 6615423-X (Version None)
Quarter: 2010Q1

REPORT INFORMATION
  Report Type: 
  Country: None (occurrence: None)
  Receive Date: 20100305
  Receipt Date: 20091202
  Transmission Date: 20100710
  Serious: No
  Sender: FDA-Public Use
  Company Number: A0832860A

PATIENT
  Age: 61 Year
  Sex: Male

DRUGS (1)
  1. ROPINIROLE [Suspect]

REACTIONS (3)
  - DRUG INEFFECTIVE [None]
  - PAIN [None]
  - SCREAMING [None]
